FAERS Safety Report 4830172-6 (Version None)
Quarter: 2005Q4

REPORT INFORMATION
  Report Type: 
  Country: None (occurrence: None)
  Receive Date: 20051117
  Receipt Date: 20050705
  Transmission Date: 20060501
  Serious: Yes (Other)
  Sender: FDA-Public Use
  Company Number: US-MERCK-0507USA00616

PATIENT
  Age: 48 Year
  Sex: Female
  Weight: 136 kg

DRUGS (8)
  1. VIOXX [Suspect]
     Indication: RHEUMATOID ARTHRITIS
     Route: 048
     Dates: start: 20010701, end: 20020201
  2. VIOXX [Suspect]
     Route: 048
     Dates: start: 20000301, end: 20010101
  3. VIOXX [Suspect]
     Indication: CONNECTIVE TISSUE DISORDER
     Route: 048
     Dates: start: 20010701, end: 20020201
  4. VIOXX [Suspect]
     Route: 048
     Dates: start: 20000301, end: 20010101
  5. IBUPROFEN [Concomitant]
     Route: 065
     Dates: end: 20050215
  6. DARVOCET-N 100 [Concomitant]
     Route: 065
  7. [THERAPY UNSPECIFIED] [Concomitant]
     Route: 065
     Dates: end: 20050215
  8. [THERAPY UNSPECIFIED] [Concomitant]
     Route: 065
     Dates: end: 20010101

REACTIONS (11)
  - BLOOD CHOLESTEROL INCREASED [None]
  - CARDIAC VALVE DISEASE [None]
  - CEREBROVASCULAR ACCIDENT [None]
  - CHRONIC OBSTRUCTIVE PULMONARY DISEASE [None]
  - DIABETES MELLITUS [None]
  - DIZZINESS [None]
  - GASTROOESOPHAGEAL REFLUX DISEASE [None]
  - HYPERTENSION [None]
  - PARALYSIS [None]
  - STOMACH DISCOMFORT [None]
  - TRANSIENT ISCHAEMIC ATTACK [None]
